APPROVED DRUG PRODUCT: DIFLORASONE DIACETATE
Active Ingredient: DIFLORASONE DIACETATE
Strength: 0.05%
Dosage Form/Route: OINTMENT;TOPICAL
Application: A075374 | Product #001 | TE Code: AB
Applicant: AVONDALE PHARMACEUTICALS LLC
Approved: Apr 27, 1999 | RLD: No | RS: No | Type: RX